FAERS Safety Report 6985589-0 (Version None)
Quarter: 2010Q3

REPORT INFORMATION
  Report Type: 
  Country: None (occurrence: None)
  Receive Date: 20100915
  Receipt Date: 20100521
  Transmission Date: 20110219
  Serious: No
  Sender: FDA-Public Use
  Company Number: A0860821A

PATIENT
  Age: 25 Year
  Sex: Male

DRUGS (1)
  1. NICORETTE MINIS MINT [Suspect]

REACTIONS (1)
  - ADVERSE DRUG REACTION [None]
